FAERS Safety Report 8069854-4 (Version None)
Quarter: 2012Q1

REPORT INFORMATION
  Report Type: 
  Country: None (occurrence: None)
  Receive Date: 20120125
  Receipt Date: 20120124
  Transmission Date: 20120608
  Serious: No
  Sender: FDA-Public Use
  Company Number: US-PFIZER INC-2012019896

PATIENT
  Sex: Female
  Weight: 65.76 kg

DRUGS (6)
  1. TEGRETOL [Concomitant]
     Indication: BIPOLAR DISORDER
     Dosage: UNK
  2. CHANTIX [Suspect]
     Indication: SMOKING CESSATION THERAPY
     Dosage: 0.5 MG, 1X/DAY
     Route: 048
     Dates: start: 20120121
  3. VALIUM [Concomitant]
     Indication: BIPOLAR DISORDER
     Dosage: UNK
  4. SYNTHROID [Concomitant]
     Indication: THYROID DISORDER
     Dosage: UNK
  5. XANAX [Concomitant]
     Indication: BIPOLAR DISORDER
     Dosage: UNK
  6. CELEXA [Concomitant]
     Indication: DEPRESSION
     Dosage: UNK

REACTIONS (2)
  - TOBACCO USER [None]
  - NAUSEA [None]
